FAERS Safety Report 4991909-9 (Version None)
Quarter: 2006Q2

REPORT INFORMATION
  Report Type: 
  Country: None (occurrence: None)
  Receive Date: 20060504
  Receipt Date: 20051017
  Transmission Date: 20061013
  Serious: Yes (Hospitalization, Other)
  Sender: FDA-Public Use
  Company Number: US-MERCK-0510USA07758

PATIENT
  Age: 59 Year
  Sex: Male
  Weight: 75 kg

DRUGS (7)
  1. VIOXX [Suspect]
     Indication: ARTHRITIS
     Route: 048
     Dates: start: 20021203
  2. VIOXX [Suspect]
     Indication: BACK PAIN
     Route: 048
     Dates: start: 20021203
  3. ENALAPRIL MALEATE [Concomitant]
     Route: 065
  4. ZOCOR [Concomitant]
     Route: 048
  5. IBUPROFEN [Concomitant]
     Route: 065
  6. CEPHALEXIN [Concomitant]
     Route: 065
  7. BROMATANE DX [Concomitant]
     Route: 065

REACTIONS (7)
  - BACK PAIN [None]
  - CEREBROVASCULAR ACCIDENT [None]
  - CHRONIC OBSTRUCTIVE PULMONARY DISEASE [None]
  - DYSPNOEA [None]
  - HYPERTENSION [None]
  - LARYNGITIS [None]
  - SLEEP DISORDER [None]
